FAERS Safety Report 6341660-8 (Version None)
Quarter: 2009Q3

REPORT INFORMATION
  Report Type: 
  Country: None (occurrence: None)
  Receive Date: 20090902
  Receipt Date: 20090902
  Transmission Date: 20100115
  Serious: Yes (Other)
  Sender: FDA-Public Use
  Company Number: None

PATIENT
  Age: 59 Year
  Sex: Female
  Weight: 65.7716 kg

DRUGS (2)
  1. ACETAMINOPHEN [Suspect]
     Indication: SLEEP DISORDER
     Dosage: 2 TABLETS ONCE A DAY FOR 14 YRS MOUTH
     Route: 048
     Dates: start: 19930101, end: 20070101
  2. DIPHENHYDRAMINE HCL 25 MG [Suspect]

REACTIONS (4)
  - OEDEMA PERIPHERAL [None]
  - PAIN [None]
  - RHINORRHOEA [None]
  - SKIN MASS [None]
